FAERS Safety Report 21970741 (Version 9)
Quarter: 2024Q1

REPORT INFORMATION
  Report Type: Spontaneous
  Country: CA (occurrence: CA)
  Receive Date: 20230209
  Receipt Date: 20240214
  Transmission Date: 20240409
  Serious: Yes (Death, Hospitalization, Disabling)
  Sender: FDA-Public Use
  Company Number: CA-ROCHE-2770199

PATIENT
  Age: 80 Year
  Sex: Male
  Weight: 69 kg

DRUGS (57)
  1. CEFTRIAXONE SODIUM [Suspect]
     Active Substance: CEFTRIAXONE SODIUM
     Indication: Bacterial infection
     Route: 042
  2. CEFTRIAXONE SODIUM [Suspect]
     Active Substance: CEFTRIAXONE SODIUM
     Route: 042
  3. CEFTRIAXONE SODIUM [Suspect]
     Active Substance: CEFTRIAXONE SODIUM
     Route: 042
  4. CEFTRIAXONE SODIUM [Suspect]
     Active Substance: CEFTRIAXONE SODIUM
     Route: 042
  5. CEFTRIAXONE SODIUM [Suspect]
     Active Substance: CEFTRIAXONE SODIUM
     Route: 065
  6. CALCITRIOL [Suspect]
     Active Substance: CALCITRIOL
     Indication: Vitamin D
     Route: 048
  7. CALCITRIOL [Suspect]
     Active Substance: CALCITRIOL
     Route: 048
  8. CALCITRIOL [Suspect]
     Active Substance: CALCITRIOL
     Route: 048
  9. CALCITRIOL [Suspect]
     Active Substance: CALCITRIOL
     Route: 048
  10. ALLOPURINOL [Suspect]
     Active Substance: ALLOPURINOL
     Indication: Blood uric acid increased
     Dosage: 100 MG
     Route: 048
  11. ALLOPURINOL [Suspect]
     Active Substance: ALLOPURINOL
     Route: 048
  12. ALLOPURINOL [Suspect]
     Active Substance: ALLOPURINOL
     Route: 048
  13. ALLOPURINOL [Suspect]
     Active Substance: ALLOPURINOL
     Route: 048
  14. ALLOPURINOL [Suspect]
     Active Substance: ALLOPURINOL
     Route: 048
  15. ALLOPURINOL [Suspect]
     Active Substance: ALLOPURINOL
     Route: 048
  16. ALLOPURINOL [Suspect]
     Active Substance: ALLOPURINOL
     Route: 048
  17. ALLOPURINOL [Suspect]
     Active Substance: ALLOPURINOL
     Route: 048
  18. ALLOPURINOL [Suspect]
     Active Substance: ALLOPURINOL
     Route: 048
  19. DEXTROSE [Suspect]
     Active Substance: DEXTROSE\DEXTROSE MONOHYDRATE
     Indication: Nutritional supplementation
     Route: 042
  20. DEXTROSE [Suspect]
     Active Substance: DEXTROSE\DEXTROSE MONOHYDRATE
     Route: 042
  21. DEXTROSE [Suspect]
     Active Substance: DEXTROSE\DEXTROSE MONOHYDRATE
     Route: 042
  22. DEXTROSE [Suspect]
     Active Substance: DEXTROSE\DEXTROSE MONOHYDRATE
     Route: 042
  23. DEXTROSE [Suspect]
     Active Substance: DEXTROSE\DEXTROSE MONOHYDRATE
     Route: 065
  24. DEXTROSE [Suspect]
     Active Substance: DEXTROSE\DEXTROSE MONOHYDRATE
     Route: 042
  25. DEXTROSE [Suspect]
     Active Substance: DEXTROSE\DEXTROSE MONOHYDRATE
     Route: 042
  26. DEXTROSE [Suspect]
     Active Substance: DEXTROSE\DEXTROSE MONOHYDRATE
     Route: 042
  27. DEXTROSE [Suspect]
     Active Substance: DEXTROSE\DEXTROSE MONOHYDRATE
     Route: 042
  28. DEXTROSE [Suspect]
     Active Substance: DEXTROSE\DEXTROSE MONOHYDRATE
     Route: 042
  29. DEXTROSE [Suspect]
     Active Substance: DEXTROSE\DEXTROSE MONOHYDRATE
     Route: 042
  30. DEXTROSE [Suspect]
     Active Substance: DEXTROSE\DEXTROSE MONOHYDRATE
     Route: 042
  31. DEXTROSE [Suspect]
     Active Substance: DEXTROSE\DEXTROSE MONOHYDRATE
     Route: 042
  32. VITAMIN K1 [Suspect]
     Active Substance: PHYTONADIONE
     Indication: Vitamin supplementation
     Route: 042
  33. VITAMIN K1 [Suspect]
     Active Substance: PHYTONADIONE
     Route: 042
  34. VITAMIN K1 [Suspect]
     Active Substance: PHYTONADIONE
     Route: 042
  35. VITAMIN K1 [Suspect]
     Active Substance: PHYTONADIONE
     Route: 042
  36. VITAMIN K1 [Suspect]
     Active Substance: PHYTONADIONE
     Route: 050
  37. VITAMIN K1 [Suspect]
     Active Substance: PHYTONADIONE
     Route: 050
  38. OSELTAMIVIR [Suspect]
     Active Substance: OSELTAMIVIR
     Indication: Product used for unknown indication
     Route: 054
  39. OSELTAMIVIR [Suspect]
     Active Substance: OSELTAMIVIR
     Route: 065
  40. OSELTAMIVIR [Suspect]
     Active Substance: OSELTAMIVIR
     Route: 042
  41. HEPARIN SODIUM [Suspect]
     Active Substance: HEPARIN SODIUM
     Indication: Anticoagulant therapy
     Route: 042
  42. HEPARIN SODIUM [Suspect]
     Active Substance: HEPARIN SODIUM
     Route: 042
  43. HEPARIN SODIUM [Suspect]
     Active Substance: HEPARIN SODIUM
     Route: 065
  44. TAMIFLU [Suspect]
     Active Substance: OSELTAMIVIR PHOSPHATE
     Indication: Chronic obstructive pulmonary disease
     Route: 065
  45. OSELTAMIVIR [Suspect]
     Active Substance: OSELTAMIVIR
     Indication: Chronic obstructive pulmonary disease
     Route: 065
  46. OSELTAMIVIR [Suspect]
     Active Substance: OSELTAMIVIR
     Route: 065
  47. DOBUTAMINE HYDROCHLORIDE [Concomitant]
     Active Substance: DOBUTAMINE HYDROCHLORIDE
     Indication: Cardiogenic shock
     Route: 065
  48. DOBUTAMINE HYDROCHLORIDE [Concomitant]
     Active Substance: DOBUTAMINE HYDROCHLORIDE
     Route: 042
  49. RIBOFLAVIN [Concomitant]
     Active Substance: RIBOFLAVIN
     Route: 048
  50. ALBUTEROL [Concomitant]
     Active Substance: ALBUTEROL
  51. SIMVASTATIN [Concomitant]
     Active Substance: SIMVASTATIN
     Indication: Blood cholesterol increased
     Route: 048
  52. DISODIUM HYDROGEN CITRATE [Concomitant]
     Active Substance: DISODIUM HYDROGEN CITRATE
     Route: 065
  53. SODIUM PICOSULFATE [Concomitant]
     Active Substance: SODIUM PICOSULFATE
     Indication: Constipation
     Route: 054
  54. VITAMIN C [Concomitant]
     Active Substance: ASCORBIC ACID
  55. WARFARIN [Concomitant]
     Active Substance: WARFARIN
     Route: 048
  56. WARFARIN [Concomitant]
     Active Substance: WARFARIN
     Route: 048
  57. DARBEPOETIN ALFA [Concomitant]
     Active Substance: DARBEPOETIN ALFA

REACTIONS (49)
  - Abdominal distension [Fatal]
  - Abdominal pain [Fatal]
  - Appendicolith [Fatal]
  - Ascites [Fatal]
  - Cardiogenic shock [Fatal]
  - Constipation [Fatal]
  - General physical health deterioration [Fatal]
  - Hyponatraemia [Fatal]
  - Multiple organ dysfunction syndrome [Fatal]
  - Nausea [Fatal]
  - Sepsis [Fatal]
  - Stress [Fatal]
  - Vomiting [Fatal]
  - Appendicitis [Fatal]
  - Ventricular fibrillation [Fatal]
  - Blood phosphorus increased [Fatal]
  - Somnolence [Fatal]
  - Condition aggravated [Fatal]
  - Dry mouth [Fatal]
  - Appendicitis [Fatal]
  - Blood cholesterol increased [Fatal]
  - Blood uric acid increased [Fatal]
  - Myasthenia gravis [Fatal]
  - Drug hypersensitivity [Fatal]
  - Drug intolerance [Fatal]
  - Hypophosphataemia [Fatal]
  - Hyperphosphataemia [Fatal]
  - Pulmonary embolism [Fatal]
  - Sleep disorder [Fatal]
  - Swelling [Fatal]
  - Thrombosis [Fatal]
  - Activated partial thromboplastin time prolonged [Fatal]
  - Aortic stenosis [Fatal]
  - Aspartate aminotransferase increased [Fatal]
  - Bacterial infection [Fatal]
  - Bacteroides infection [Fatal]
  - Chronic obstructive pulmonary disease [Fatal]
  - Diabetes mellitus [Fatal]
  - End stage renal disease [Fatal]
  - Gout [Fatal]
  - Hyperlipidaemia [Fatal]
  - Hypertension [Fatal]
  - Iron deficiency [Fatal]
  - Neuralgia [Fatal]
  - Sleep disorder therapy [Fatal]
  - Ulcer [Fatal]
  - Incorrect route of product administration [Fatal]
  - Intentional product misuse [Fatal]
  - Off label use [Fatal]
